FAERS Safety Report 23956078 (Version 1)
Quarter: 2024Q2

REPORT INFORMATION
  Report Type: Spontaneous
  Country: NL (occurrence: NL)
  Receive Date: 20240610
  Receipt Date: 20240610
  Transmission Date: 20240715
  Serious: Yes (Hospitalization)
  Sender: FDA-Public Use
  Company Number: None

PATIENT
  Age: 64 Year
  Sex: Female
  Weight: 77 kg

DRUGS (1)
  1. SULFASALAZINE [Suspect]
     Active Substance: SULFASALAZINE
     Indication: Rheumatoid arthritis
     Dosage: 2 PIECES TWICE A DAY, SULFASALAZINE MSR / BRAND NAME NOT SPECIFIED
     Route: 065
     Dates: start: 20231214, end: 20240418

REACTIONS (2)
  - Interstitial lung abnormality [Recovering/Resolving]
  - Pneumonia [Recovering/Resolving]
